FAERS Safety Report 14693894 (Version 1)
Quarter: 2018Q1

REPORT INFORMATION
  Report Type: Spontaneous
  Country: US (occurrence: US)
  Receive Date: 20180329
  Receipt Date: 20180329
  Transmission Date: 20180509
  Serious: Yes (Other)
  Sender: FDA-Public Use
  Company Number: US-SEPTODONT-201804579

PATIENT
  Age: 25 Year
  Sex: Male
  Weight: 76.2 kg

DRUGS (4)
  1. LIDOCAINE 1:100,000 [Suspect]
     Active Substance: EPINEPHRINE\LIDOCAINE HYDROCHLORIDE
     Indication: DENTAL LOCAL ANAESTHESIA
     Dosage: 1 IANB, 1 INFILTRATION, 35MM 27G PLASTIC HUB DENTAL NEEDLE
     Dates: start: 20171025, end: 20171025
  2. INSULIN [Concomitant]
     Active Substance: INSULIN NOS
  3. SEPTOCAINE AND EPINEPHRINE [Suspect]
     Active Substance: ARTICAINE HYDROCHLORIDE\EPINEPHRINE BITARTRATE
     Indication: DENTAL LOCAL ANAESTHESIA
     Dosage: 1 IANB, 1 INFILTRATION, 35MM 27G PLASTIC HUB DENTAL NEEDLE
     Dates: start: 20171025, end: 20171025
  4. 20% BENZOCAINE [Concomitant]
     Active Substance: BENZOCAINE

REACTIONS (3)
  - Paraesthesia [Unknown]
  - Urticaria [Unknown]
  - Swelling face [Unknown]

NARRATIVE: CASE EVENT DATE: 20171025
